FAERS Safety Report 8585468-1 (Version None)
Quarter: 2012Q3

REPORT INFORMATION
  Report Type: 
  Country: None (occurrence: None)
  Receive Date: 20120810
  Receipt Date: 20110927
  Transmission Date: 20120928
  Serious: No
  Sender: FDA-Public Use
  Company Number: US-GLAXOSMITHKLINE-A0946188A

PATIENT
  Age: 71 Year
  Sex: Female

DRUGS (4)
  1. LIPITOR [Concomitant]
  2. REQUIP XL [Suspect]
     Indication: PARKINSON'S DISEASE
     Dosage: 6MG THREE TIMES PER DAY
     Route: 048
     Dates: start: 20090101
  3. BETA BLOCKER [Concomitant]
  4. DIURETIC [Concomitant]

REACTIONS (2)
  - THERAPY REGIMEN CHANGED [None]
  - THERAPEUTIC RESPONSE UNEXPECTED [None]
